FAERS Safety Report 6093902-4 (Version None)
Quarter: 2009Q1

REPORT INFORMATION
  Report Type: 
  Country: None (occurrence: None)
  Receive Date: 20090223
  Receipt Date: 20090213
  Transmission Date: 20090719
  Serious: Yes (Hospitalization, Disabling)
  Sender: FDA-Public Use
  Company Number: 2009SP001229

PATIENT
  Age: 52 Year
  Sex: Female
  Weight: 55 kg

DRUGS (10)
  1. INTRON A [Suspect]
     Indication: ESSENTIAL THROMBOCYTHAEMIA
     Dosage: 30000000 IU; SC
     Route: 058
     Dates: start: 20030101
  2. INTRON A [Suspect]
     Indication: OFF LABEL USE
     Dosage: 30000000 IU; SC
     Route: 058
     Dates: start: 20030101
  3. WARFARIN SODIUM [Suspect]
     Indication: CEREBRAL THROMBOSIS
     Dosage: 3 MG;QD;PO; 5 MG;QD;PO
     Route: 048
     Dates: start: 20000501
  4. WARFARIN SODIUM [Suspect]
     Indication: ESSENTIAL THROMBOCYTHAEMIA
     Dosage: 3 MG;QD;PO; 5 MG;QD;PO
     Route: 048
     Dates: start: 20000501
  5. WARFARIN SODIUM [Suspect]
     Indication: PORTAL VEIN THROMBOSIS
     Dosage: 3 MG;QD;PO; 5 MG;QD;PO
     Route: 048
     Dates: start: 20000501
  6. WARFARIN SODIUM [Suspect]
     Indication: THROMBOSIS MESENTERIC VESSEL
     Dosage: 3 MG;QD;PO; 5 MG;QD;PO
     Route: 048
     Dates: start: 20000501
  7. WARFARIN SODIUM [Suspect]
     Indication: CEREBRAL THROMBOSIS
     Dosage: 3 MG;QD;PO; 5 MG;QD;PO
     Route: 048
     Dates: start: 20000501
  8. WARFARIN SODIUM [Suspect]
     Indication: ESSENTIAL THROMBOCYTHAEMIA
     Dosage: 3 MG;QD;PO; 5 MG;QD;PO
     Route: 048
     Dates: start: 20000501
  9. WARFARIN SODIUM [Suspect]
     Indication: PORTAL VEIN THROMBOSIS
     Dosage: 3 MG;QD;PO; 5 MG;QD;PO
     Route: 048
     Dates: start: 20000501
  10. WARFARIN SODIUM [Suspect]
     Indication: THROMBOSIS MESENTERIC VESSEL
     Dosage: 3 MG;QD;PO; 5 MG;QD;PO
     Route: 048
     Dates: start: 20000501

REACTIONS (2)
  - CEREBRAL INFARCTION [None]
  - THROMBOCYTHAEMIA [None]
